FAERS Safety Report 16245717 (Version 1)
Quarter: 2019Q2

REPORT INFORMATION
  Report Type: Spontaneous
  Country: US (occurrence: US)
  Receive Date: 20190426
  Receipt Date: 20190426
  Transmission Date: 20190711
  Serious: No
  Sender: FDA-Public Use
  Company Number: US-FOUNDATIONCONSUMERHC-2019-US-003280

PATIENT
  Sex: Female

DRUGS (1)
  1. PLAN B ONE-STEP [Suspect]
     Active Substance: LEVONORGESTREL
     Indication: POST COITAL CONTRACEPTION
     Dosage: 1.5 MG X 1 DOSE
     Route: 048
     Dates: start: 20190215, end: 20190215

REACTIONS (4)
  - Urticaria [Unknown]
  - Pharyngeal swelling [Unknown]
  - Abdominal pain upper [Unknown]
  - Swollen tongue [Unknown]

NARRATIVE: CASE EVENT DATE: 20190215
